FAERS Safety Report 5629306-5 (Version None)
Quarter: 2008Q1

REPORT INFORMATION
  Report Type: 
  Country: None (occurrence: None)
  Receive Date: 20080218
  Receipt Date: 20080211
  Transmission Date: 20080703
  Serious: Yes (Death, Other)
  Sender: FDA-Public Use
  Company Number: CA-ELI_LILLY_AND_COMPANY-CA200802002839

PATIENT
  Age: 23 Year
  Sex: Female

DRUGS (2)
  1. ZYPREXA [Suspect]
  2. CELEXA [Concomitant]

REACTIONS (2)
  - DEATH [None]
  - SYNCOPE [None]
